FAERS Safety Report 9986433 (Version 1)
Quarter: 2014Q1

REPORT INFORMATION
  Report Type: Report from Study
  Country: US (occurrence: US)
  Receive Date: 20140307
  Receipt Date: 20140307
  Transmission Date: 20141002
  Serious: No
  Sender: FDA-Public Use
  Company Number: US-ABBVIE-13P-163-1088027-00

PATIENT
  Age: 57 Year
  Sex: Female

DRUGS (8)
  1. HUMIRA [Suspect]
     Indication: CROHN^S DISEASE
     Dates: start: 20130227
  2. LAMICTAL [Concomitant]
     Indication: DEPRESSION
     Dosage: 200 MG DAILY
  3. LEXAPRO [Concomitant]
     Indication: DEPRESSION
     Dosage: 20 MG DAILY
  4. ABILIFY [Concomitant]
     Indication: DEPRESSION
     Dosage: 5 MG DAILY
  5. CLONAZEPAM [Concomitant]
     Indication: DEPRESSION
     Dosage: 0.5 MG AS NEEDED
  6. CLONAZEPAM [Concomitant]
     Indication: ANXIETY
  7. LIALDA [Concomitant]
     Indication: CROHN^S DISEASE
     Dosage: 2.4 MG
  8. TRAZODONE [Concomitant]
     Indication: DEPRESSION
     Dosage: 50 MG AT NIGHT

REACTIONS (3)
  - Fatigue [Not Recovered/Not Resolved]
  - Asthenia [Not Recovered/Not Resolved]
  - Abdominal distension [Not Recovered/Not Resolved]
